FAERS Safety Report 9187928 (Version 1)
Quarter: 2013Q1

REPORT INFORMATION
  Report Type: Spontaneous
  Country: FR (occurrence: FR)
  Receive Date: 20130325
  Receipt Date: 20130325
  Transmission Date: 20140127
  Serious: Yes (Life-Threatening, Hospitalization, Other)
  Sender: FDA-Public Use
  Company Number: FR-009507513-1303FRA008284

PATIENT
  Age: 24 Year
  Sex: Female

DRUGS (1)
  1. VARNOLINE [Suspect]
     Indication: CONTRACEPTION
     Dosage: 1 DF, QD
     Route: 048
     Dates: start: 2010, end: 20120601

REACTIONS (2)
  - Myocardial infarction [Recovered/Resolved with Sequelae]
  - Ischaemic stroke [Recovered/Resolved with Sequelae]
